FAERS Safety Report 21644716 (Version 1)
Quarter: 2022Q4

REPORT INFORMATION
  Report Type: Spontaneous
  Country: JP (occurrence: JP)
  Receive Date: 20221125
  Receipt Date: 20221125
  Transmission Date: 20230113
  Serious: Yes (Other)
  Sender: FDA-Public Use
  Company Number: JP-ALLERGAN-2239050US

PATIENT
  Sex: Male

DRUGS (2)
  1. URSODIOL [Suspect]
     Active Substance: URSODIOL
     Indication: Product used for unknown indication
     Dosage: 2 DF
     Route: 048
  2. URSODIOL [Suspect]
     Active Substance: URSODIOL
     Dosage: 50 MG
     Route: 048

REACTIONS (4)
  - Cholecystectomy [Unknown]
  - Pyrexia [Unknown]
  - Physical deconditioning [Unknown]
  - Intentional product misuse [Unknown]
